FAERS Safety Report 19121248 (Version 1)
Quarter: 2021Q2

REPORT INFORMATION
  Report Type: Spontaneous
  Country: US (occurrence: US)
  Receive Date: 20210412
  Receipt Date: 20210412
  Transmission Date: 20210717
  Serious: No
  Sender: FDA-Public Use
  Company Number: None

PATIENT
  Age: 87 Year
  Sex: Female
  Weight: 59.4 kg

DRUGS (12)
  1. OMEPRAZOLE. [Concomitant]
     Active Substance: OMEPRAZOLE
  2. OXYBUTYNIN. [Concomitant]
     Active Substance: OXYBUTYNIN CHLORIDE
  3. IBRANCE [Suspect]
     Active Substance: PALBOCICLIB
     Indication: BREAST CANCER
     Dosage: ?          OTHER FREQUENCY:BID FOR 21/28 DAYS;?
     Route: 048
     Dates: start: 20170418
  4. METHOCARBAMOL. [Concomitant]
     Active Substance: METHOCARBAMOL
  5. MULTIVITAMIN [Concomitant]
     Active Substance: VITAMINS
  6. VITAMIN B12 [Concomitant]
     Active Substance: CYANOCOBALAMIN
  7. LETROZOLE. [Concomitant]
     Active Substance: LETROZOLE
  8. TRAMADOL. [Concomitant]
     Active Substance: TRAMADOL
  9. SPIRONOLACTONE. [Concomitant]
     Active Substance: SPIRONOLACTONE
  10. ATENOLOL. [Concomitant]
     Active Substance: ATENOLOL
  11. METHYLPREDNISOLONE. [Concomitant]
     Active Substance: METHYLPREDNISOLONE
  12. VITAMIN D3 [Concomitant]
     Active Substance: CHOLECALCIFEROL

REACTIONS (3)
  - Dyspnoea [None]
  - Dizziness [None]
  - Gastric cancer [None]

NARRATIVE: CASE EVENT DATE: 20210412
